FAERS Safety Report 8168774 (Version 2)
Quarter: 2013Q2

REPORT INFORMATION
  Report Type: Spontaneous
  Country: US (occurrence: US)
  Receive Date: 20111005
  Receipt Date: 20130412
  Transmission Date: 20140414
  Serious: Yes (Other)
  Sender: FDA-Public Use
  Company Number: DE-RANBAXY-2009US-46713

PATIENT
  Sex: 0

DRUGS (1)
  1. RANITIDINE [Suspect]
     Indication: STRESS ULCER
     Dosage: UNK
     Route: 065

REACTIONS (1)
  - Pneumonia [Unknown]
